FAERS Safety Report 7319704-6 (Version None)
Quarter: 2011Q1

REPORT INFORMATION
  Report Type: 
  Country: None (occurrence: None)
  Receive Date: 20110228
  Receipt Date: 20100813
  Transmission Date: 20110831
  Serious: No
  Sender: FDA-Public Use
  Company Number: A0875759A

PATIENT
  Sex: Female

DRUGS (4)
  1. NEURONTIN [Concomitant]
  2. LAMICTAL [Suspect]
     Indication: BIPOLAR DISORDER
     Dosage: 100MG PER DAY
     Route: 065
  3. TRAZODONE [Concomitant]
  4. CYMBALTA [Concomitant]

REACTIONS (4)
  - MUSCULOSKELETAL STIFFNESS [None]
  - PYREXIA [None]
  - HYPERHIDROSIS [None]
  - NAUSEA [None]
